APPROVED DRUG PRODUCT: CELECOXIB
Active Ingredient: CELECOXIB
Strength: 400MG
Dosage Form/Route: CAPSULE;ORAL
Application: A212925 | Product #002
Applicant: PANGEA PHARMACEUTICALS LLC
Approved: Dec 9, 2020 | RLD: No | RS: No | Type: DISCN